FAERS Safety Report 9511749 (Version 1)
Quarter: 2013Q1

REPORT INFORMATION
  Report Type: Spontaneous
  Country: US (occurrence: None)
  Receive Date: 20130305
  Receipt Date: 20130305
  Transmission Date: 20140127
  Serious: Yes (Other)
  Sender: FDA-Public Use
  Company Number: 163-21880-12103494

PATIENT
  Age: 69 Year
  Sex: Male

DRUGS (16)
  1. REVLIMID [Suspect]
     Indication: MYELODYSPLASTIC SYNDROME
     Route: 048
     Dates: start: 200701
  2. CELEBREX (CELECOXIB) (UNKNOWN) [Concomitant]
  3. SOMA (CARISOPRODOL) (UNKNOWN) [Concomitant]
  4. LANTUS (INSULIN GLARGINE) (UNKNOWN) [Concomitant]
  5. HUMALOG (INSULIN GLARGINE) (UNKNOWN) [Concomitant]
  6. MULTIVITAMIN (MULTIVITAMINS) (UNKNOWN) [Concomitant]
  7. FLOMAX (TAMSULOSIN HYDROCHLORIDE) (UNKNOWN) [Concomitant]
  8. NEURONTIN (GABAPENTIN) (UNKNOWN) [Concomitant]
  9. MORPHINE (MORPHINE) (UNKNOWN) (MORPHINE) [Concomitant]
  10. TERBINAFINE (TERBINAFINE) (UNKNOWN) [Concomitant]
  11. PRILOSEC (OMEPRAZOLE) (UNKNOWN) [Concomitant]
  12. NITROFUR MAC (NITROFURANTIOIN) (UNKNOWN) [Concomitant]
  13. HYDROCODONE (HYDROCODONE) (UNKNOWN) [Concomitant]
  14. FINASTERIDE (FINASTERIDE) (UNKNOWN) [Concomitant]
  15. DRONABINOL (DRONABINOL) (UNKNOWN) [Concomitant]
  16. MARIJUANA (CANNABIS) (PILL) [Concomitant]

REACTIONS (2)
  - Localised infection [None]
  - Nausea [None]
